FAERS Safety Report 24844106 (Version 1)
Quarter: 2025Q1

REPORT INFORMATION
  Report Type: Spontaneous
  Country: US (occurrence: US)
  Receive Date: 20250115
  Receipt Date: 20250115
  Transmission Date: 20250409
  Serious: No
  Sender: SANOFI AVENTIS
  Company Number: US-SA-2025SA011131

PATIENT
  Age: 82 Year
  Sex: Female
  Weight: 73.64 kg

DRUGS (24)
  1. DUPIXENT [Suspect]
     Active Substance: DUPILUMAB
     Indication: Dermatitis atopic
     Dosage: 300 MG, QOW
     Route: 058
  2. DUPIXENT [Suspect]
     Active Substance: DUPILUMAB
     Indication: Asthma
  3. DESONIDE [Concomitant]
     Active Substance: DESONIDE
  4. CLOBETASOL PROPIONATE [Concomitant]
     Active Substance: CLOBETASOL PROPIONATE
  5. CALCIUM [Concomitant]
     Active Substance: CALCIUM
  6. CALCITRIOL [Concomitant]
     Active Substance: CALCITRIOL
  7. ANASTROZOLE [Concomitant]
     Active Substance: ANASTROZOLE
  8. AMLODIPINE BESYLATE [Concomitant]
     Active Substance: AMLODIPINE BESYLATE
  9. NYSTATIN [Concomitant]
     Active Substance: NYSTATIN
  10. VITAMINS [Concomitant]
     Active Substance: VITAMINS
  11. LEVOTHYROXINE SODIUM [Concomitant]
     Active Substance: LEVOTHYROXINE SODIUM
  12. KETOCONAZOLE [Concomitant]
     Active Substance: KETOCONAZOLE
  13. HUMALOG [Concomitant]
     Active Substance: INSULIN LISPRO
  14. HYDRALAZINE HCL [Concomitant]
     Active Substance: HYDRALAZINE HYDROCHLORIDE
  15. GABAPENTIN [Concomitant]
     Active Substance: GABAPENTIN
  16. FUROSEMIDE [Concomitant]
     Active Substance: FUROSEMIDE
  17. FLUTICASONE PROPIONATE [Concomitant]
     Active Substance: FLUTICASONE PROPIONATE
  18. FLUOCINOLONE ACETONIDE [Concomitant]
     Active Substance: FLUOCINOLONE ACETONIDE
  19. FIBER THERAPY (CALCIUM POLYCARBOPHIL) [Concomitant]
     Active Substance: CALCIUM POLYCARBOPHIL
  20. ALLOPURINOL [Concomitant]
     Active Substance: ALLOPURINOL
  21. ALBUTEROL SULFATE [Concomitant]
     Active Substance: ALBUTEROL SULFATE
  22. ASPIRIN [Concomitant]
     Active Substance: ASPIRIN
  23. ALBUTEROL SULFATE [Concomitant]
     Active Substance: ALBUTEROL SULFATE
  24. NYSTATIN [Concomitant]
     Active Substance: NYSTATIN

REACTIONS (2)
  - Dry skin [Unknown]
  - Asthma [Unknown]

NARRATIVE: CASE EVENT DATE: 20240101
